FAERS Safety Report 7327098-5 (Version None)
Quarter: 2011Q1

REPORT INFORMATION
  Report Type: 
  Country: None (occurrence: None)
  Receive Date: 20110302
  Receipt Date: 20110223
  Transmission Date: 20110831
  Serious: Yes (Hospitalization)
  Sender: FDA-Public Use
  Company Number: US-US-EMD SERONO, INC.-7028585

PATIENT
  Sex: Female

DRUGS (5)
  1. PROAIR HFA [Concomitant]
     Indication: ASTHMA
  2. REBIF [Suspect]
     Dates: start: 20100101, end: 20101115
  3. REBIF [Suspect]
     Route: 058
     Dates: start: 20101206, end: 20110221
  4. REBIF [Suspect]
     Dates: start: 20100101, end: 20100101
  5. REBIF [Suspect]
     Indication: PROGRESSIVE MULTIPLE SCLEROSIS
     Dates: start: 20100801, end: 20100101

REACTIONS (6)
  - INJECTION SITE PAIN [None]
  - HEADACHE [None]
  - MULTIPLE SCLEROSIS RELAPSE [None]
  - INJECTION SITE RASH [None]
  - INJECTION SITE HAEMATOMA [None]
  - ANXIETY [None]
